FAERS Safety Report 23547213 (Version 2)
Quarter: 2024Q1

REPORT INFORMATION
  Report Type: Report from Study
  Country: FR (occurrence: FR)
  Receive Date: 20240221
  Receipt Date: 20240229
  Transmission Date: 20240410
  Serious: Yes (Other)
  Sender: FDA-Public Use
  Company Number: FR-GLAXOSMITHKLINE-FR2024EME021133

PATIENT

DRUGS (1)
  1. MOMELOTINIB [Suspect]
     Active Substance: MOMELOTINIB
     Indication: Primary myelofibrosis

REACTIONS (2)
  - Renal failure [Recovered/Resolved]
  - Chronic kidney disease [Recovered/Resolved]
